FAERS Safety Report 8437491-5 (Version None)
Quarter: 2012Q2

REPORT INFORMATION
  Report Type: 
  Country: None (occurrence: None)
  Receive Date: 20120614
  Receipt Date: 20120504
  Transmission Date: 20120825
  Serious: No
  Sender: FDA-Public Use
  Company Number: US-ASTRAZENECA-2012SE29165

PATIENT
  Sex: Female

DRUGS (1)
  1. SEROQUEL XR [Suspect]
     Route: 048

REACTIONS (7)
  - FEELING ABNORMAL [None]
  - INSOMNIA RELATED TO ANOTHER MENTAL CONDITION [None]
  - CRYING [None]
  - TREMOR [None]
  - DRUG WITHDRAWAL SYNDROME [None]
  - FEELING HOT [None]
  - DRUG DOSE OMISSION [None]
